FAERS Safety Report 12605817 (Version 7)
Quarter: 2017Q1

REPORT INFORMATION
  Report Type: Spontaneous
  Country: US (occurrence: US)
  Receive Date: 20160729
  Receipt Date: 20170217
  Transmission Date: 20170428
  Serious: Yes (Congenital Anomaly, Other)
  Sender: FDA-Public Use
  Company Number: PHHY2015US127046

PATIENT
  Sex: Male

DRUGS (3)
  1. ZOFRAN ODT [Suspect]
     Active Substance: ONDANSETRON HYDROCHLORIDE
     Indication: FOETAL EXPOSURE DURING PREGNANCY
     Dosage: UNK
     Route: 064
  2. ONDANSETRON [Suspect]
     Active Substance: ONDANSETRON
     Indication: FOETAL EXPOSURE DURING PREGNANCY
     Dosage: MOTHER DOSE: (UNSPECIFIED), AS NEEDED (PRN)
     Route: 064
  3. ZOFRAN [Suspect]
     Active Substance: ONDANSETRON HYDROCHLORIDE
     Indication: FOETAL EXPOSURE DURING PREGNANCY
     Dosage: MOTHER DOSE: (UNSPECIFIED) ONCE DAILY
     Route: 064

REACTIONS (19)
  - Heart disease congenital [Unknown]
  - Congenital hypothyroidism [Unknown]
  - Fall [Unknown]
  - Headache [Unknown]
  - Right aortic arch [Unknown]
  - Foetal exposure during pregnancy [Unknown]
  - Bicuspid aortic valve [Unknown]
  - Aortic valve disease [Unknown]
  - Head injury [Unknown]
  - Haematuria [Unknown]
  - Upper respiratory tract infection [Unknown]
  - Coarctation of the aorta [Unknown]
  - Cystitis [Unknown]
  - Congenital aortic valve stenosis [Unknown]
  - Adrenogenital syndrome [Unknown]
  - Sepsis neonatal [Unknown]
  - Congenital hydronephrosis [Unknown]
  - Ear pain [Unknown]
  - Otitis media acute [Unknown]
